FAERS Safety Report 23457716 (Version 1)
Quarter: 2024Q1

REPORT INFORMATION
  Report Type: Spontaneous
  Country: US (occurrence: None)
  Receive Date: 20240130
  Receipt Date: 20240130
  Transmission Date: 20240409
  Serious: Yes (Hospitalization)
  Sender: FDA-Public Use
  Company Number: None

PATIENT
  Age: 60 Year
  Sex: Female

DRUGS (10)
  1. SPRYCEL [Suspect]
     Active Substance: DASATINIB
     Indication: Leukaemia
     Dosage: FREQUENCY : DAILY;?
     Route: 048
     Dates: start: 20230630
  2. GABAPENTIN [Concomitant]
     Active Substance: GABAPENTIN
  3. PAROXETINE [Concomitant]
     Active Substance: PAROXETINE
  4. SUBOXONE [Concomitant]
     Active Substance: BUPRENORPHINE HYDROCHLORIDE\NALOXONE HYDROCHLORIDE
  5. VITAMIN B-COMPLEX [Concomitant]
     Active Substance: DEXPANTHENOL\NIACINAMIDE\PYRIDOXINE HYDROCHLORIDE\RIBOFLAVIN 5^-PHOSPHATE SODIUM\THIAMINE HYDROCHLOR
  6. CIPROFLOXACIN [Concomitant]
     Active Substance: CIPROFLOXACIN
  7. ACYCLOVIR [Concomitant]
     Active Substance: ACYCLOVIR
  8. PROTONIX [Concomitant]
     Active Substance: PANTOPRAZOLE SODIUM
  9. NICOTINE [Concomitant]
     Active Substance: NICOTINE
  10. FLUCONAZOLE [Concomitant]
     Active Substance: FLUCONAZOLE

REACTIONS (1)
  - Full blood count abnormal [None]

NARRATIVE: CASE EVENT DATE: 20231201
